FAERS Safety Report 8557213 (Version 3)
Quarter: 2012Q4

REPORT INFORMATION
  Report Type: 
  Country: US (occurrence: US)
  Receive Date: 20120511
  Receipt Date: 20121026
  Transmission Date: 20130627
  Serious: Yes (Hospitalization)
  Sender: FDA-Public Use
  Company Number: US-BAYER-2012-044380

PATIENT
  Age: 33 Year
  Sex: Female
  Weight: 65.76 kg

DRUGS (13)
  1. YAZ [Suspect]
     Indication: ACNE
     Dosage: UNK
     Dates: start: 200805, end: 200811
  2. YAZ [Suspect]
     Indication: MENSTRUAL CYCLE MANAGEMENT
  3. YAZ [Suspect]
     Indication: PREMENSTRUAL SYNDROME
  4. SYNTHROID [Concomitant]
     Indication: HYPOTHYROIDISM
     Dosage: 0.150 daily
     Route: 048
     Dates: start: 20061002, end: 20090603
  5. SYNTHROID [Concomitant]
     Indication: HYPOTHYROIDISM
     Dosage: UNK
     Route: 048
     Dates: start: 1998
  6. ZANTAC [Concomitant]
     Dosage: 150 mg, QD
     Route: 048
  7. AZITHROMYCIN [Concomitant]
     Dosage: 250 mg, UNK
     Dates: start: 20081031
  8. CODEINE/PROMETHAZINE [Concomitant]
     Dosage: UNK
     Dates: start: 20081102
  9. LEVAQUIN [Concomitant]
     Indication: PNEUMONIA
     Dosage: 500 mg, QD
     Route: 048
     Dates: start: 20081110
  10. VICODIN [Concomitant]
     Indication: PAIN
     Dosage: 1 tab q 12hrs
     Route: 048
     Dates: start: 20081026, end: 20081110
  11. SOMA [Concomitant]
     Indication: MUSCLE SPASM
     Dosage: 350 mg, 1 tablet, BID
     Route: 048
     Dates: start: 20081110
  12. HYDROCODONE [Concomitant]
  13. ADVIL [Concomitant]
     Dosage: intermittent
     Route: 048

REACTIONS (10)
  - Pulmonary embolism [Recovered/Resolved]
  - Chest pain [Recovered/Resolved]
  - Dyspnoea [Recovered/Resolved]
  - Pain [None]
  - Injury [Recovered/Resolved]
  - General physical health deterioration [None]
  - Anxiety [None]
  - Emotional distress [None]
  - General physical health deterioration [None]
  - Anhedonia [None]
